FAERS Safety Report 5348317-0 (Version None)
Quarter: 2007Q2

REPORT INFORMATION
  Report Type: 
  Country: None (occurrence: None)
  Receive Date: 20070605
  Receipt Date: 20070529
  Transmission Date: 20071010
  Serious: Yes (Other)
  Sender: FDA-Public Use
  Company Number: 16660

PATIENT
  Age: 65 Year
  Sex: Male

DRUGS (4)
  1. METHOTREXATE [Suspect]
     Indication: RHEUMATOID ARTHRITIS
     Dosage: 10 MG WEEKLY
  2. PREDNISOLONE [Suspect]
     Indication: RHEUMATOID ARTHRITIS
     Dosage: 0.15 MG/KG DAILY
  3. NONSTEROIDAL ANTIINFLAMMATORY DRUGS [Concomitant]
  4. BROAD-SPECTRUM ANTIBIOTICS [Concomitant]

REACTIONS (3)
  - HERPES ZOSTER [None]
  - LOBAR PNEUMONIA [None]
  - POST HERPETIC NEURALGIA [None]
